FAERS Safety Report 9173228 (Version 1)
Quarter: 2013Q1

REPORT INFORMATION
  Report Type: Spontaneous
  Country: US (occurrence: None)
  Receive Date: 20130314
  Receipt Date: 20130314
  Transmission Date: 20140127
  Serious: Yes (Hospitalization)
  Sender: FDA-Public Use
  Company Number: 1633121

PATIENT
  Age: 78 Year
  Sex: Male

DRUGS (2)
  1. VANCOMYCIN HYDROCHLORIDE [Suspect]
     Indication: OSTEOMYELITIS
  2. ZOSYN [Suspect]

REACTIONS (2)
  - Pleural effusion [None]
  - Drug reaction with eosinophilia and systemic symptoms [None]
